FAERS Safety Report 15501102 (Version 4)
Quarter: 2019Q1

REPORT INFORMATION
  Report Type: Spontaneous
  Country: GB (occurrence: GB)
  Receive Date: 20181015
  Receipt Date: 20190114
  Transmission Date: 20190417
  Serious: Yes (Hospitalization)
  Sender: FDA-Public Use
  Company Number: GB-BIOMARINAP-GB-2018-120167

PATIENT
  Age: 4 Year
  Sex: Male
  Weight: 13 kg

DRUGS (4)
  1. AMETOP                             /00041401/ [Concomitant]
     Indication: PRODUCT USED FOR UNKNOWN INDICATION
  2. HEPARIN [Concomitant]
     Active Substance: HEPARIN SODIUM
     Indication: CATHETER MANAGEMENT
  3. VIMIZIM [Suspect]
     Active Substance: ELOSULFASE ALFA
     Indication: MUCOPOLYSACCHARIDOSIS IV
     Dosage: 25 MILLIGRAM, QW
     Route: 042
     Dates: start: 20171016
  4. SODIUM CHLORIDE. [Concomitant]
     Active Substance: SODIUM CHLORIDE
     Indication: PRODUCT USED FOR UNKNOWN INDICATION

REACTIONS (3)
  - Gastrostomy [Unknown]
  - Pyrexia [Unknown]
  - Gastrostomy tube site complication [Unknown]

NARRATIVE: CASE EVENT DATE: 201810
